FAERS Safety Report 19294226 (Version 1)
Quarter: 2021Q2

REPORT INFORMATION
  Report Type: Spontaneous
  Country: US (occurrence: US)
  Receive Date: 20210524
  Receipt Date: 20210524
  Transmission Date: 20210717
  Serious: Yes (Hospitalization)
  Sender: FDA-Public Use
  Company Number: None

PATIENT
  Age: 78 Year
  Sex: Male
  Weight: 126 kg

DRUGS (13)
  1. ABIRATERONE. [Suspect]
     Active Substance: ABIRATERONE ACETATE
     Indication: PRODUCT USED FOR UNKNOWN INDICATION
     Route: 048
     Dates: start: 20200304
  2. METOPROLOL SUCCINATE ER 100MG [Concomitant]
  3. PRAVASTATIN. [Concomitant]
     Active Substance: PRAVASTATIN
  4. VITAMIN D 50MCG [Concomitant]
  5. IMODIUM AD 2MG [Concomitant]
  6. ASPIRIN 81MG [Concomitant]
     Active Substance: ASPIRIN
  7. UBIQUINOL 100MG [Concomitant]
  8. ASCORBIC ACID 500MG [Concomitant]
  9. ENTRESTO 24?26MG [Concomitant]
  10. LORATADINE 10MG [Concomitant]
     Active Substance: LORATADINE
  11. FINASTERIDE 5MG [Concomitant]
     Active Substance: FINASTERIDE
  12. FLAXSEED OIL 1000MG [Concomitant]
  13. MULTIVITAMIN [Concomitant]
     Active Substance: VITAMINS

REACTIONS (1)
  - Gastric ulcer [None]

NARRATIVE: CASE EVENT DATE: 20210514
